FAERS Safety Report 6204240-0 (Version None)
Quarter: 2009Q2

REPORT INFORMATION
  Report Type: 
  Country: None (occurrence: None)
  Receive Date: 20090526
  Receipt Date: 20090526
  Transmission Date: 20091009
  Serious: Yes (Life-Threatening, Hospitalization)
  Sender: FDA-Public Use
  Company Number: None

PATIENT
  Age: 24 Year
  Sex: Female
  Weight: 108.4097 kg

DRUGS (1)
  1. YASMIN [Suspect]
     Indication: DEPRESSION
     Dosage: 1 TABLET 1/DAY PO
     Route: 048
     Dates: start: 20080701, end: 20090425

REACTIONS (1)
  - PULMONARY EMBOLISM [None]
